FAERS Safety Report 19827547 (Version 1)
Quarter: 2021Q3

REPORT INFORMATION
  Report Type: Spontaneous
  Country: US (occurrence: US)
  Receive Date: 20210914
  Receipt Date: 20210914
  Transmission Date: 20211014
  Serious: Yes (Other)
  Sender: FDA-Public Use
  Company Number: US-MICRO LABS LIMITED-ML2021-02248

PATIENT
  Age: 9 Year
  Sex: Female

DRUGS (1)
  1. LEVETIRACETAM INJECTION USP, 500 MG/5 ML (100 MG/ML) [Suspect]
     Active Substance: LEVETIRACETAM
     Indication: FOCAL DYSCOGNITIVE SEIZURES

REACTIONS (2)
  - Drug ineffective [Unknown]
  - Behaviour disorder [Unknown]
